FAERS Safety Report 10207741 (Version 1)
Quarter: 2014Q2

REPORT INFORMATION
  Report Type: Spontaneous
  Country: US (occurrence: US)
  Receive Date: 20140530
  Receipt Date: 20140530
  Transmission Date: 20141212
  Serious: No
  Sender: FDA-Public Use
  Company Number: US-GLAXOSMITHKLINE-A1057085A

PATIENT
  Sex: Female

DRUGS (3)
  1. VENTOLIN [Suspect]
     Indication: ASTHMA
     Route: 055
  2. TOPOMAX [Concomitant]
  3. TYLENOL [Concomitant]

REACTIONS (4)
  - Nasopharyngitis [Unknown]
  - Cough [Unknown]
  - Treatment noncompliance [Unknown]
  - Bronchitis [Unknown]
